FAERS Safety Report 4513602-9 (Version None)
Quarter: 2004Q4

REPORT INFORMATION
  Report Type: 
  Country: None (occurrence: None)
  Receive Date: 20041130
  Receipt Date: 20040810
  Transmission Date: 20050328
  Serious: No
  Sender: FDA-Public Use
  Company Number: US-GLAXOSMITHKLINE-A0521665A

PATIENT
  Age: 61 Year
  Sex: Male

DRUGS (4)
  1. WELLBUTRIN XL [Suspect]
     Indication: DEPRESSION
     Dosage: 300MG PER DAY
     Route: 048
  2. COLCHICINE [Concomitant]
  3. ASPIRIN [Concomitant]
  4. FLOMAX [Concomitant]

REACTIONS (1)
  - DRUG INEFFECTIVE [None]
